FAERS Safety Report 15698774 (Version 2)
Quarter: 2018Q4

REPORT INFORMATION
  Report Type: Spontaneous
  Country: ES (occurrence: ES)
  Receive Date: 20181207
  Receipt Date: 20181218
  Transmission Date: 20190205
  Serious: Yes (Congenital Anomaly, Other)
  Sender: FDA-Public Use
  Company Number: ES-ALKEM LABORATORIES LIMITED-ES-ALKEM-2018-10485

PATIENT
  Sex: Female

DRUGS (2)
  1. MYCOPHENOLATE MOFETIL. [Suspect]
     Active Substance: MYCOPHENOLATE MOFETIL
     Indication: PRODUCT USED FOR UNKNOWN INDICATION
     Dosage: UNK
     Route: 064
  2. TACROLIMUS. [Concomitant]
     Active Substance: TACROLIMUS
     Indication: PRODUCT USED FOR UNKNOWN INDICATION
     Dosage: UNK
     Route: 064

REACTIONS (9)
  - Eyelid ptosis congenital [Unknown]
  - Hypertelorism of orbit [Unknown]
  - Micrognathia [Unknown]
  - Choroidal coloboma [Unknown]
  - Foetal exposure during pregnancy [Unknown]
  - External auditory canal atresia [Unknown]
  - Microtia [Unknown]
  - Retinal coloboma [Unknown]
  - Cleft lip and palate [Unknown]
